FAERS Safety Report 7054975-5 (Version None)
Quarter: 2010Q4

REPORT INFORMATION
  Report Type: 
  Country: None (occurrence: None)
  Receive Date: 20101021
  Receipt Date: 20101012
  Transmission Date: 20110411
  Serious: Yes (Death)
  Sender: FDA-Public Use
  Company Number: US-ELI_LILLY_AND_COMPANY-US201009004482

PATIENT
  Sex: Female

DRUGS (7)
  1. ALIMTA [Suspect]
     Indication: LUNG CARCINOMA CELL TYPE UNSPECIFIED STAGE I
     Dosage: 885 MG, UNK
     Dates: start: 20090501
  2. ALIMTA [Suspect]
     Dosage: 835 MG, UNK
  3. ALIMTA [Suspect]
     Dosage: 820 MG, UNK
  4. CARBOPLATIN [Concomitant]
  5. AVASTIN [Concomitant]
  6. VITAMIN B-12 [Concomitant]
     Dosage: 1000 UG, UNK
     Route: 030
  7. FOLIC ACID [Concomitant]
     Dosage: 1 MG, DAILY (1/D)

REACTIONS (1)
  - MALIGNANT NEOPLASM PROGRESSION [None]
